FAERS Safety Report 15752389 (Version 3)
Quarter: 2019Q1

REPORT INFORMATION
  Report Type: Spontaneous
  Country: JP (occurrence: JP)
  Receive Date: 20181221
  Receipt Date: 20190121
  Transmission Date: 20190417
  Serious: Yes (Life-Threatening, Disabling)
  Sender: FDA-Public Use
  Company Number: JP-ELI_LILLY_AND_COMPANY-JP201812008451

PATIENT
  Age: 68 Year
  Sex: Male
  Weight: 61 kg

DRUGS (8)
  1. MAGMITT [Concomitant]
     Active Substance: MAGNESIUM OXIDE
     Indication: CONSTIPATION
     Dosage: 990 MG, DAILY
     Route: 048
     Dates: start: 20181202, end: 20181216
  2. DULOXETINE HYDROCHLORIDE. [Suspect]
     Active Substance: DULOXETINE HYDROCHLORIDE
     Indication: DEPRESSION
     Dosage: 40 MG, DAILY
     Route: 048
     Dates: start: 20181213, end: 20181216
  3. AMOXAN [Suspect]
     Active Substance: AMOXAPINE
     Indication: DEPRESSION
     Dosage: 60 MG, DAILY
     Route: 048
     Dates: start: 20181204, end: 20181210
  4. LORAZEPAM. [Concomitant]
     Active Substance: LORAZEPAM
     Indication: ANXIETY
     Dosage: 1.5 MG, DAILY
     Route: 048
     Dates: start: 20181206, end: 20181216
  5. ANGELICA ACUTILOBA ROOT;ANGELICA DAHURICA ROO [Concomitant]
     Dosage: 7.5 G, UNK
     Route: 048
     Dates: start: 20181213, end: 20181215
  6. SODIUM PICOSULFATE [Concomitant]
     Active Substance: SODIUM PICOSULFATE
     Indication: CONSTIPATION
     Dosage: 7.5 MG, UNK
     Route: 048
     Dates: start: 20181128, end: 20181216
  7. QUETIAPINE. [Suspect]
     Active Substance: QUETIAPINE
     Indication: DEPRESSION
     Dosage: 75 MG, DAILY
     Route: 048
     Dates: start: 20181210, end: 20181213
  8. BROTIZOLAM [Concomitant]
     Active Substance: BROTIZOLAM
     Indication: INSOMNIA
     Dosage: 0.25 MG, DAILY
     Route: 048
     Dates: start: 20181202, end: 20181216

REACTIONS (4)
  - Neuroleptic malignant syndrome [Recovered/Resolved]
  - Generalised erythema [Recovered/Resolved]
  - Stevens-Johnson syndrome [Recovered/Resolved]
  - Ocular hyperaemia [Unknown]

NARRATIVE: CASE EVENT DATE: 20181215
